FAERS Safety Report 16309380 (Version 1)
Quarter: 2019Q2

REPORT INFORMATION
  Report Type: Report from Study
  Country: ES (occurrence: ES)
  Receive Date: 20190514
  Receipt Date: 20190514
  Transmission Date: 20190711
  Serious: Yes (Other)
  Sender: FDA-Public Use
  Company Number: ES-TEVA-2019-ES-1049165

PATIENT
  Age: 94 Year
  Sex: Female

DRUGS (4)
  1. ADIRO 100 MG COMPRIMIDOS GASTRORRESISTENTES EFG [Concomitant]
     Active Substance: ASPIRIN
  2. RISPERIDONA 1 MG 60 COMPRIMIDOS [Concomitant]
     Indication: SENILE DEMENTIA
     Dosage: 1-1-1
     Route: 048
     Dates: start: 2013
  3. TORASEMIDA  STADA 5 MG COMPRIMIDOS EFG [Concomitant]
  4. QUETIAPINA 25 MG 60 COMPRIMIDOS [Suspect]
     Active Substance: QUETIAPINE
     Indication: DISTURBANCE IN SOCIAL BEHAVIOUR
     Dosage: 2-2-2
     Route: 048
     Dates: start: 20180703, end: 20180829

REACTIONS (1)
  - Sinus bradycardia [Recovered/Resolved]

NARRATIVE: CASE EVENT DATE: 201808
